FAERS Safety Report 8545968-7 (Version None)
Quarter: 2012Q3

REPORT INFORMATION
  Report Type: 
  Country: None (occurrence: None)
  Receive Date: 20120727
  Receipt Date: 20111128
  Transmission Date: 20120928
  Serious: No
  Sender: FDA-Public Use
  Company Number: US-ASTRAZENECA-2011SE72196

PATIENT
  Sex: Male

DRUGS (1)
  1. SEROQUEL [Suspect]
     Indication: ANXIETY
     Route: 048

REACTIONS (5)
  - IRRITABILITY [None]
  - OFF LABEL USE [None]
  - MUSCLE SPASMS [None]
  - DRUG DOSE OMISSION [None]
  - HEADACHE [None]
